FAERS Safety Report 25422714 (Version 1)
Quarter: 2025Q2

REPORT INFORMATION
  Report Type: Spontaneous
  Country: US (occurrence: US)
  Receive Date: 20250611
  Receipt Date: 20250611
  Transmission Date: 20250717
  Serious: Yes (Hospitalization)
  Sender: AUROBINDO
  Company Number: US-AUROBINDO-AUR-APL-2025-028270

PATIENT
  Age: 65 Year
  Sex: Male
  Weight: 81.64 kg

DRUGS (1)
  1. TESTOSTERONE CYPIONATE [Suspect]
     Active Substance: TESTOSTERONE CYPIONATE
     Indication: Product used for unknown indication
     Route: 065

REACTIONS (16)
  - Illness [Unknown]
  - Pyrexia [Unknown]
  - Jaundice [Unknown]
  - Decreased appetite [Unknown]
  - Headache [Unknown]
  - Chills [Unknown]
  - Confusional state [Unknown]
  - Vomiting [Unknown]
  - Liquid product physical issue [Unknown]
  - Recalled product administered [Unknown]
  - Administration site cyst [Unknown]
  - Administration site pain [Unknown]
  - Product substitution issue [Unknown]
  - Product with quality issue administered [Unknown]
  - Wrong technique in product usage process [Unknown]
  - Administration site swelling [Unknown]
